FAERS Safety Report 15664162 (Version 1)
Quarter: 2018Q4

REPORT INFORMATION
  Report Type: Report from Study
  Country: DE (occurrence: DE)
  Receive Date: 20181128
  Receipt Date: 20181128
  Transmission Date: 20190205
  Serious: Yes (Hospitalization)
  Sender: FDA-Public Use
  Company Number: DE-BIOGEN-2018BI00661923

PATIENT
  Sex: Female

DRUGS (1)
  1. AVONEX [Suspect]
     Active Substance: INTERFERON BETA-1A
     Indication: MULTIPLE SCLEROSIS
     Route: 030
     Dates: start: 20000229

REACTIONS (6)
  - Splenomegaly [Not Recovered/Not Resolved]
  - Back pain [Not Recovered/Not Resolved]
  - Pelvic inflammatory disease [Recovered/Resolved]
  - Intervertebral disc protrusion [Unknown]
  - Liver function test increased [Not Recovered/Not Resolved]
  - Hepatomegaly [Not Recovered/Not Resolved]

NARRATIVE: CASE EVENT DATE: 2018
